FAERS Safety Report 6603418-1 (Version None)
Quarter: 2010Q1

REPORT INFORMATION
  Report Type: 
  Country: None (occurrence: None)
  Receive Date: 20100226
  Receipt Date: 20090504
  Transmission Date: 20100710
  Serious: No
  Sender: FDA-Public Use
  Company Number: A0782352A

PATIENT
  Age: 59 Year
  Sex: Female

DRUGS (4)
  1. VALTREX [Suspect]
     Dosage: 1G THREE TIMES PER DAY
     Route: 048
  2. SYNTHROID [Concomitant]
  3. FEMHRT [Concomitant]
  4. ZOCOR [Concomitant]

REACTIONS (1)
  - LABORATORY TEST INTERFERENCE [None]
